FAERS Safety Report 6505893-X (Version None)
Quarter: 2009Q4

REPORT INFORMATION
  Report Type: 
  Country: None (occurrence: None)
  Receive Date: 20091218
  Receipt Date: 20091209
  Transmission Date: 20100525
  Serious: Yes (Death, Hospitalization, Other)
  Sender: FDA-Public Use
  Company Number: US-BRISTOL-MYERS SQUIBB COMPANY-14876403

PATIENT
  Age: 66 Year
  Sex: Female
  Weight: 60 kg

DRUGS (11)
  1. PACLITAXEL [Suspect]
     Indication: LUNG CANCER METASTATIC
     Route: 042
     Dates: start: 20091118, end: 20091118
  2. CETUXIMAB [Suspect]
     Indication: LUNG CANCER METASTATIC
     Dosage: 08C00515B
     Route: 042
     Dates: start: 20091118, end: 20091118
  3. CARBOPLATIN [Suspect]
     Indication: LUNG CANCER METASTATIC
     Route: 042
     Dates: start: 20091118, end: 20091118
  4. DECADRON [Concomitant]
     Route: 042
     Dates: start: 20091118, end: 20091118
  5. COZAAR [Concomitant]
     Indication: HYPERTENSION
  6. ZOFRAN [Concomitant]
     Indication: NAUSEA
  7. ZOFRAN [Concomitant]
     Indication: VOMITING
  8. ACETAMINOPHEN [Concomitant]
     Dates: start: 20091118, end: 20091118
  9. CIMETIDINE [Concomitant]
     Route: 042
     Dates: start: 20091118, end: 20091118
  10. DIPHENHYDRAMINE HCL [Concomitant]
     Route: 042
     Dates: start: 20091118, end: 20091118
  11. PALONOSETRON [Concomitant]
     Route: 042
     Dates: start: 20091118, end: 20091118

REACTIONS (2)
  - ABDOMINAL PAIN [None]
  - NEUTROPENIC SEPSIS [None]
